FAERS Safety Report 9840793 (Version 2)
Quarter: 2014Q1

REPORT INFORMATION
  Report Type: Spontaneous
  Country: JP (occurrence: JP)
  Receive Date: 20140124
  Receipt Date: 20140124
  Transmission Date: 20141002
  Serious: Yes (Disabling)
  Sender: FDA-Public Use
  Company Number: PHHY2013JP146800

PATIENT
  Age: 71 Year
  Sex: Male

DRUGS (3)
  1. NEORAL [Suspect]
     Indication: INTERSTITIAL LUNG DISEASE
     Dosage: 100 MG DAILY
     Route: 048
     Dates: start: 20131202, end: 20131209
  2. NEORAL [Suspect]
     Indication: OFF LABEL USE
  3. ENDOXAN [Suspect]

REACTIONS (6)
  - Liver disorder [Recovered/Resolved]
  - Hepatic function abnormal [Recovered/Resolved]
  - Renal disorder [Recovered/Resolved]
  - Blood creatinine increased [Recovered/Resolved]
  - Blood urea increased [Recovered/Resolved]
  - Blood uric acid increased [Recovered/Resolved]
